FAERS Safety Report 7779352-0 (Version None)
Quarter: 2011Q3

REPORT INFORMATION
  Report Type: 
  Country: None (occurrence: None)
  Receive Date: 20110926
  Receipt Date: 20100322
  Transmission Date: 20111222
  Serious: Yes (Hospitalization)
  Sender: FDA-Public Use
  Company Number: PHHY2011TW13729

PATIENT
  Sex: Female

DRUGS (2)
  1. SPRYCEL [Suspect]
  2. TASIGNA [Suspect]
     Indication: CHRONIC MYELOID LEUKAEMIA
     Dosage: 800 MG, DAILY
     Route: 048

REACTIONS (7)
  - DRUG INEFFECTIVE [None]
  - WHITE BLOOD CELL COUNT INCREASED [None]
  - ABDOMINAL PAIN UPPER [None]
  - BONE PAIN [None]
  - DYSPHONIA [None]
  - NASOPHARYNGITIS [None]
  - DRY SKIN [None]
